FAERS Safety Report 23957735 (Version 1)
Quarter: 2024Q2

REPORT INFORMATION
  Report Type: Spontaneous
  Country: GB (occurrence: GB)
  Receive Date: 20240610
  Receipt Date: 20240610
  Transmission Date: 20240715
  Serious: Yes (Other)
  Sender: FDA-Public Use
  Company Number: GB-009507513-2406GBR002546

PATIENT
  Sex: Male

DRUGS (1)
  1. KEYTRUDA [Suspect]
     Active Substance: PEMBROLIZUMAB
     Indication: Neoplasm malignant
     Dosage: UNK UNK, EVERY 6 WEEKS
     Route: 042

REACTIONS (8)
  - Lower respiratory tract infection [Unknown]
  - Neuropathy peripheral [Unknown]
  - Productive cough [Unknown]
  - Lymphadenitis [Unknown]
  - Decreased appetite [Unknown]
  - Cough [Unknown]
  - Back pain [Unknown]
  - Dyspnoea [Unknown]

NARRATIVE: CASE EVENT DATE: 20240501
